FAERS Safety Report 10726819 (Version 1)
Quarter: 2015Q1

REPORT INFORMATION
  Report Type: Spontaneous
  Country: US (occurrence: None)
  Receive Date: 20150120
  Receipt Date: 20150120
  Transmission Date: 20150721
  Serious: No
  Sender: FDA-Public Use
  Company Number: DL2014-0985

PATIENT
  Age: 21 Year
  Sex: Female

DRUGS (3)
  1. MISOPROSTOL TABLETS [Suspect]
     Active Substance: MISOPROSTOL
     Route: 002
     Dates: start: 20140419
  2. MIFEPRISTONE [Suspect]
     Active Substance: MIFEPRISTONE
     Indication: ABORTION INDUCED
     Route: 048
     Dates: start: 20140418
  3. METRONIDAZOLE. [Concomitant]
     Active Substance: METRONIDAZOLE

REACTIONS (2)
  - Abortion incomplete [None]
  - Pyrexia [None]

NARRATIVE: CASE EVENT DATE: 20140421
